FAERS Safety Report 7347895-X (Version None)
Quarter: 2011Q1

REPORT INFORMATION
  Report Type: 
  Country: None (occurrence: None)
  Receive Date: 20110311
  Receipt Date: 20110307
  Transmission Date: 20110831
  Serious: No
  Sender: FDA-Public Use
  Company Number: US-CEPHALON-2011001078

PATIENT
  Sex: Male

DRUGS (2)
  1. OXYCODONE [Concomitant]
  2. FENTORA [Suspect]
     Route: 002
     Dates: start: 20110307

REACTIONS (1)
  - DRUG PRESCRIBING ERROR [None]
